FAERS Safety Report 8030075-2 (Version None)
Quarter: 2012Q1

REPORT INFORMATION
  Report Type: 
  Country: None (occurrence: None)
  Receive Date: 20120109
  Receipt Date: 20111228
  Transmission Date: 20120608
  Serious: Yes (Hospitalization)
  Sender: FDA-Public Use
  Company Number: IT-JNJFOC-20120101618

PATIENT
  Sex: Female

DRUGS (3)
  1. PALEXIA [Suspect]
     Indication: ARTHRALGIA
     Route: 048
     Dates: start: 20111109, end: 20111119
  2. PERINDOPRIL ERBUMINE [Concomitant]
     Indication: PRODUCT USED FOR UNKNOWN INDICATION
     Route: 048
  3. DELORAZEPAM [Concomitant]
     Indication: PRODUCT USED FOR UNKNOWN INDICATION
     Route: 065

REACTIONS (2)
  - CONFUSIONAL STATE [None]
  - PSYCHOMOTOR HYPERACTIVITY [None]
